FAERS Safety Report 20291248 (Version 1)
Quarter: 2022Q1

REPORT INFORMATION
  Report Type: Report from Study
  Country: US (occurrence: US)
  Receive Date: 20220104
  Receipt Date: 20220104
  Transmission Date: 20220424
  Serious: Yes (Other)
  Sender: FDA-Public Use
  Company Number: US-JNJFOC-20211265979

PATIENT
  Age: 26 Year
  Sex: Male

DRUGS (3)
  1. SPRAVATO [Suspect]
     Active Substance: ESKETAMINE
     Indication: Depression
     Dosage: 56 MG, 1 TOTAL DOSE
     Dates: start: 20211130, end: 20211130
  2. SPRAVATO [Suspect]
     Active Substance: ESKETAMINE
     Dosage: 84MG, 3 TOTAL DOSE
     Dates: start: 20211202, end: 20211209
  3. SPRAVATO [Suspect]
     Active Substance: ESKETAMINE
     Dosage: 28 MG. 1 TOTAL DOSE
     Dates: start: 20211228, end: 20211228

REACTIONS (1)
  - Vomiting [Recovered/Resolved]

NARRATIVE: CASE EVENT DATE: 20211228
